FAERS Safety Report 12689078 (Version 2)
Quarter: 2017Q2

REPORT INFORMATION
  Report Type: Spontaneous
  Country: US (occurrence: US)
  Receive Date: 20160826
  Receipt Date: 20170413
  Transmission Date: 20170830
  Serious: Yes (Other)
  Sender: FDA-Public Use
  Company Number: US-TEVA-687291ACC

PATIENT
  Age: 39 Year
  Sex: Female
  Weight: 68.1 kg

DRUGS (2)
  1. PEPCID [Concomitant]
     Active Substance: FAMOTIDINE
  2. PARAGARD T 380A [Suspect]
     Active Substance: COPPER
     Indication: CONTRACEPTION
     Dates: start: 20120328, end: 20160817

REACTIONS (10)
  - Chlamydial infection [Recovered/Resolved]
  - Coital bleeding [Recovered/Resolved]
  - Vaginal haemorrhage [Recovered/Resolved]
  - Fungal infection [Recovered/Resolved]
  - Vaginal discharge [Unknown]
  - Vulvovaginal discomfort [Unknown]
  - Carcinoid tumour of the gastrointestinal tract [Unknown]
  - Bacterial vaginosis [Recovered/Resolved]
  - Cervicitis [Recovered/Resolved]
  - Vaginal odour [Unknown]

NARRATIVE: CASE EVENT DATE: 20140617
